FAERS Safety Report 13253231 (Version 2)
Quarter: 2017Q1

REPORT INFORMATION
  Report Type: Spontaneous
  Country: SE (occurrence: SE)
  Receive Date: 20170220
  Receipt Date: 20170224
  Transmission Date: 20170428
  Serious: Yes (Death)
  Sender: FDA-Public Use
  Company Number: SE-ABBVIE-17P-150-1877286-00

PATIENT
  Sex: Female

DRUGS (1)
  1. VENCLEXTA [Suspect]
     Active Substance: VENETOCLAX
     Indication: ACUTE MYELOID LEUKAEMIA
     Route: 048
     Dates: start: 2017

REACTIONS (3)
  - Death [Fatal]
  - Central nervous system haemorrhage [Fatal]
  - Off label use [Fatal]

NARRATIVE: CASE EVENT DATE: 20170213
